FAERS Safety Report 7769785-0 (Version None)
Quarter: 2011Q3

REPORT INFORMATION
  Report Type: 
  Country: None (occurrence: None)
  Receive Date: 20110922
  Receipt Date: 20100825
  Transmission Date: 20111222
  Serious: No
  Sender: FDA-Public Use
  Company Number: US-ASTRAZENECA-2007UW25120

PATIENT
  Age: 15840 Day
  Sex: Male
  Weight: 85.7 kg

DRUGS (22)
  1. SEROQUEL [Suspect]
     Dosage: 100 MG TO 300 MG
     Route: 048
     Dates: start: 20010816
  2. CRESTOR [Concomitant]
     Route: 048
     Dates: start: 20040827
  3. HALDOL [Concomitant]
     Dates: start: 19970101
  4. SEROQUEL [Suspect]
     Indication: DEPRESSION
     Dosage: 200-800 MG
     Route: 048
     Dates: start: 19970101
  5. SEROQUEL [Suspect]
     Indication: BIPOLAR DISORDER
     Dosage: 200-800 MG
     Route: 048
     Dates: start: 19970101
  6. NAVANE [Concomitant]
     Route: 048
     Dates: start: 20010221
  7. THORAZINE [Concomitant]
     Dates: start: 19970101
  8. IMITREX [Concomitant]
     Route: 048
     Dates: start: 20040119
  9. AMBIEN [Concomitant]
     Route: 048
     Dates: start: 20010221
  10. SEROQUEL [Suspect]
     Dosage: 400MG TO 800MG
     Route: 048
     Dates: start: 20060601, end: 20080101
  11. SEROQUEL [Suspect]
     Dosage: 400MG TO 800MG
     Route: 048
     Dates: start: 20060601, end: 20080101
  12. DEPAKOTE [Concomitant]
     Dosage: 10MG TO 500MG, TWO TIMES A DAY, THREE TIMES A DAY, FOUR TIMES A DAY
     Dates: start: 20030121
  13. RELPAX [Concomitant]
     Route: 048
     Dates: start: 20070924
  14. WELLBUTRIN [Concomitant]
     Dosage: 100MG TO 200MG, DAILY
     Route: 048
     Dates: start: 20021120
  15. SEROQUEL [Suspect]
     Dosage: 100 MG TO 300 MG
     Route: 048
     Dates: start: 20010816
  16. LIPITOR [Concomitant]
     Route: 048
     Dates: start: 20070823
  17. GEODON [Concomitant]
     Dosage: 60MG TO 80MG, DAILY, TWO TIMES A DAY, THREE TIMES A DAY
     Dates: start: 20030131
  18. GEODON [Concomitant]
     Dates: start: 19970101
  19. METFORMIN [Concomitant]
     Route: 048
     Dates: start: 20050930
  20. PLAVIX [Concomitant]
     Route: 048
     Dates: start: 20070403
  21. CARISOPRODOL [Concomitant]
     Route: 048
     Dates: start: 20031008
  22. MARIJUANA [Concomitant]
     Dates: start: 20050101

REACTIONS (6)
  - BLOOD CHOLESTEROL INCREASED [None]
  - BLOOD TRIGLYCERIDES INCREASED [None]
  - DIABETES MELLITUS [None]
  - TYPE 2 DIABETES MELLITUS [None]
  - HYPERLIPIDAEMIA [None]
  - DIABETIC COMPLICATION [None]
